FAERS Safety Report 25085932 (Version 1)
Quarter: 2025Q1

REPORT INFORMATION
  Report Type: Spontaneous
  Country: US (occurrence: US)
  Receive Date: 20250317
  Receipt Date: 20250317
  Transmission Date: 20250409
  Serious: No
  Sender: LEXICON PHARMACEUTICALS
  Company Number: US-LEX-000685

PATIENT
  Age: 75 Year
  Sex: Female

DRUGS (14)
  1. INPEFA [Suspect]
     Active Substance: SOTAGLIFLOZIN
     Indication: Left ventricular failure
     Route: 048
     Dates: start: 20240827, end: 20240830
  2. INPEFA [Suspect]
     Active Substance: SOTAGLIFLOZIN
     Indication: Left ventricular failure
     Dosage: DOSAGE: 0.5 TABLET HALF A TABLET EVERY OTHER DAY
     Route: 048
     Dates: start: 20240904
  3. INPEFA [Suspect]
     Active Substance: SOTAGLIFLOZIN
     Indication: Left ventricular failure
     Route: 048
  4. ENTRESTO [Concomitant]
     Active Substance: SACUBITRIL\VALSARTAN
     Indication: Product used for unknown indication
  5. ASPIRIN [Concomitant]
     Active Substance: ASPIRIN
     Indication: Product used for unknown indication
  6. ALBUTEROL [Concomitant]
     Active Substance: ALBUTEROL
     Indication: Product used for unknown indication
  7. CETIRIZINE [Concomitant]
     Active Substance: CETIRIZINE HYDROCHLORIDE
     Indication: Product used for unknown indication
  8. ATORVASTATIN [Concomitant]
     Active Substance: ATORVASTATIN
     Indication: Product used for unknown indication
  9. SPIRONOLACTONE [Concomitant]
     Active Substance: SPIRONOLACTONE
     Indication: Product used for unknown indication
  10. FLUTICASONE [Concomitant]
     Active Substance: FLUTICASONE
     Indication: Product used for unknown indication
  11. PREDNISONE [Concomitant]
     Active Substance: PREDNISONE
     Indication: Product used for unknown indication
  12. LOSARTAN [Concomitant]
     Active Substance: LOSARTAN
     Indication: Product used for unknown indication
  13. PANTOPRAZOLE [Concomitant]
     Active Substance: PANTOPRAZOLE
     Indication: Product used for unknown indication
  14. CLOPIDOGREL [Concomitant]
     Active Substance: CLOPIDOGREL BISULFATE
     Indication: Product used for unknown indication

REACTIONS (5)
  - Pruritus [Recovered/Resolved]
  - Bowel movement irregularity [Recovered/Resolved]
  - Wrong technique in product usage process [Unknown]
  - Inappropriate schedule of product administration [Unknown]
  - Off label use [Unknown]

NARRATIVE: CASE EVENT DATE: 20240830
